FAERS Safety Report 8984821 (Version 1)
Quarter: 2012Q4

REPORT INFORMATION
  Report Type: 
  Country: GB (occurrence: GB)
  Receive Date: 20121226
  Receipt Date: 20121226
  Transmission Date: 20130627
  Serious: Yes (Other)
  Sender: FDA-Public Use
  Company Number: PHFR2012GB006615

PATIENT

DRUGS (1)
  1. AFINITOR [Suspect]
     Indication: RENAL NEOPLASM
     Dosage: 10 mg, QD
     Route: 048
     Dates: start: 20121212

REACTIONS (1)
  - Retinal detachment [Unknown]
